FAERS Safety Report 19135188 (Version 1)
Quarter: 2021Q2

REPORT INFORMATION
  Report Type: Report from Study
  Country: CO (occurrence: CO)
  Receive Date: 20210414
  Receipt Date: 20210414
  Transmission Date: 20210717
  Serious: Yes (Other)
  Sender: FDA-Public Use
  Company Number: NVSC2021CO055206

PATIENT
  Age: 59 Year
  Sex: Female
  Weight: 44 kg

DRUGS (4)
  1. KISQALI [Suspect]
     Active Substance: RIBOCICLIB
     Indication: POSTMENOPAUSE
  2. FEMARA [Suspect]
     Active Substance: LETROZOLE
     Indication: BREAST CANCER
     Dosage: 2.5 MG, Q24H
     Route: 048
     Dates: start: 20201022
  3. GABAPENTIN. [Suspect]
     Active Substance: GABAPENTIN
     Indication: BACK PAIN
     Dosage: UNK, QD
     Route: 048
  4. KISQALI [Suspect]
     Active Substance: RIBOCICLIB
     Indication: BREAST CANCER METASTATIC
     Dosage: 3 DF, Q24H
     Route: 048
     Dates: start: 20201030

REACTIONS (12)
  - Malaise [Unknown]
  - Pruritus [Recovered/Resolved]
  - Pyrexia [Unknown]
  - Chills [Unknown]
  - Product use in unapproved indication [Unknown]
  - Illness [Unknown]
  - Dizziness [Unknown]
  - Lacrimation increased [Recovering/Resolving]
  - Glaucoma [Unknown]
  - Rash [Recovered/Resolved]
  - Skin discolouration [Unknown]
  - Vomiting [Unknown]

NARRATIVE: CASE EVENT DATE: 202102
